FAERS Safety Report 13836532 (Version 8)
Quarter: 2018Q1

REPORT INFORMATION
  Report Type: Report from Study
  Country: US (occurrence: US)
  Receive Date: 20170804
  Receipt Date: 20180115
  Transmission Date: 20180508
  Serious: Yes (Other)
  Sender: FDA-Public Use
  Company Number: US-BRISTOL-MYERS SQUIBB COMPANY-BMS-2017-068334

PATIENT
  Sex: Male

DRUGS (1)
  1. NIVOLUMAB [Suspect]
     Active Substance: NIVOLUMAB
     Indication: NON-SMALL CELL LUNG CANCER
     Route: 042

REACTIONS (20)
  - Thrombosis [Not Recovered/Not Resolved]
  - Dyspnoea [Unknown]
  - Rash [Unknown]
  - Decreased appetite [Unknown]
  - Nausea [Unknown]
  - Chills [Unknown]
  - Weight decreased [Unknown]
  - Back pain [Unknown]
  - Feeling cold [Unknown]
  - Memory impairment [Unknown]
  - Lymphoedema [Unknown]
  - Fall [Unknown]
  - Peripheral swelling [Unknown]
  - Diarrhoea [Unknown]
  - Dizziness [Unknown]
  - Pneumonitis [Unknown]
  - Constipation [Unknown]
  - Asthenia [Unknown]
  - Fatigue [Unknown]
  - Insomnia [Unknown]
